FAERS Safety Report 8361897-6 (Version None)
Quarter: 2012Q2

REPORT INFORMATION
  Report Type: 
  Country: None (occurrence: None)
  Receive Date: 20120515
  Receipt Date: 20120507
  Transmission Date: 20120825
  Serious: Yes (Life-Threatening, Hospitalization)
  Sender: FDA-Public Use
  Company Number: JP-PFIZER INC-2012070034

PATIENT
  Age: 66 Year
  Sex: Male
  Weight: 69 kg

DRUGS (11)
  1. AMLODIPINE [Concomitant]
     Dosage: 5 MG, 2X/DAY
     Route: 048
     Dates: end: 20120301
  2. REBAMIPIDE [Concomitant]
     Dosage: UNK
  3. AZULFIDINE [Suspect]
     Indication: RHEUMATOID ARTHRITIS
     Dosage: 500 MG, 2X/DAY
     Route: 048
     Dates: start: 20120112, end: 20120223
  4. FAMOTIDINE [Concomitant]
     Dosage: UNK
  5. PROPIVERINE HYDROCHLORIDE [Concomitant]
     Dosage: 10 MG, 1X/DAY
     Route: 048
     Dates: end: 20120301
  6. LANSOPRAZOLE [Suspect]
     Dosage: 15 MG, 1X/DAY
     Route: 048
     Dates: start: 20120112, end: 20120223
  7. GLIMEPIRIDE [Concomitant]
     Dosage: 3 MG, 1X/DAY
     Route: 048
     Dates: end: 20120301
  8. LOXONIN [Concomitant]
     Dosage: 60 MG, 3X/DAY
     Route: 048
     Dates: start: 20111222, end: 20120223
  9. PURSENNID [Concomitant]
     Dosage: 24 MG, 1X/DAY
     Route: 048
     Dates: end: 20120301
  10. SITAGLIPTIN PHOSPHATE [Concomitant]
     Dosage: 50 MG, 1X/DAY
     Route: 048
     Dates: end: 20120301
  11. AZELASTINE HYDROCHLORIDE [Concomitant]
     Dosage: A TABLET TWICE DAILY
     Route: 048
     Dates: end: 20120301

REACTIONS (2)
  - PYELONEPHRITIS [None]
  - AGRANULOCYTOSIS [None]
